FAERS Safety Report 4617666-3 (Version None)
Quarter: 2005Q1

REPORT INFORMATION
  Report Type: 
  Country: None (occurrence: None)
  Receive Date: 20050322
  Receipt Date: 20050307
  Transmission Date: 20050727
  Serious: Yes (Hospitalization)
  Sender: FDA-Public Use
  Company Number: 2005CG00492

PATIENT
  Age: 59 Year
  Sex: Female
  Weight: 80 kg

DRUGS (3)
  1. MOPRAL [Suspect]
     Dosage: 1 DF DAILY PO
     Route: 048
     Dates: start: 20041102, end: 20041109
  2. NEXEN [Suspect]
     Dosage: 1 DF DAILY PO
     Route: 048
     Dates: start: 20041102, end: 20041109
  3. ZALDIAR [Suspect]
     Dosage: 1 DF DAILY PO
     Route: 048
     Dates: start: 20041102, end: 20041109

REACTIONS (10)
  - BLOOD PRESSURE SYSTOLIC INCREASED [None]
  - EOSINOPHILIA [None]
  - ERYTHEMA [None]
  - EXANTHEM [None]
  - LYMPHOCYTOSIS [None]
  - PYREXIA [None]
  - RASH PRURITIC [None]
  - RASH RUBELLIFORM [None]
  - RASH SCARLATINIFORM [None]
  - THYROID FUNCTION TEST ABNORMAL [None]
